FAERS Safety Report 14448261 (Version 2)
Quarter: 2018Q1

REPORT INFORMATION
  Report Type: Report from Study
  Country: IN (occurrence: IN)
  Receive Date: 20180126
  Receipt Date: 20180131
  Transmission Date: 20180509
  Serious: Yes (Other)
  Sender: FDA-Public Use
  Company Number: IN-PFIZER INC-2018031077

PATIENT
  Age: 55 Year
  Sex: Male

DRUGS (4)
  1. ARSENIC TRIOXIDE [Suspect]
     Active Substance: ARSENIC TRIOXIDE
     Indication: COLORECTAL CANCER METASTATIC
     Dosage: 0.15 MG/KG/DAY, CYCLIC (ON DAYS 1 TO 2)
  2. LEUCOVORIN. [Suspect]
     Active Substance: LEUCOVORIN
     Indication: COLORECTAL CANCER METASTATIC
     Dosage: UNK UNK, CYCLIC (STANDARD DOSES EVERY 2 WEEKS)
  3. FLUOROURACIL. [Suspect]
     Active Substance: FLUOROURACIL
     Indication: COLORECTAL CANCER METASTATIC
     Dosage: UNK UNK, CYCLIC (STANDARD DOSES EVERY 2 WEEKS)
  4. IRINOTECAN HCL [Suspect]
     Active Substance: IRINOTECAN HYDROCHLORIDE
     Indication: COLORECTAL CANCER METASTATIC
     Dosage: UNK UNK, CYCLIC (STANDARD DOSES EVERY 2 WEEKS)

REACTIONS (1)
  - Electrocardiogram QT prolonged [Unknown]
